FAERS Safety Report 7727425-0 (Version None)
Quarter: 2011Q3

REPORT INFORMATION
  Report Type: 
  Country: None (occurrence: None)
  Receive Date: 20110902
  Receipt Date: 20110901
  Transmission Date: 20111222
  Serious: Yes (Death, Hospitalization, Other)
  Sender: FDA-Public Use
  Company Number: VE-PFIZER INC-2011198796

PATIENT
  Age: 88 Year
  Sex: Male

DRUGS (2)
  1. LIPITOR [Suspect]
     Dosage: 80 MG, 1X/DAY
     Route: 048
     Dates: start: 20040101
  2. PLAVIX [Concomitant]
     Dosage: DAILY
     Route: 048

REACTIONS (2)
  - BRADYCARDIA [None]
  - GENERALISED OEDEMA [None]
